FAERS Safety Report 18341511 (Version 1)
Quarter: 2020Q4

REPORT INFORMATION
  Report Type: Spontaneous
  Country: ES (occurrence: ES)
  Receive Date: 20201004
  Receipt Date: 20201004
  Transmission Date: 20210113
  Serious: Yes (Other)
  Sender: FDA-Public Use
  Company Number: ES-TEVA-2020-ES-1834323

PATIENT
  Age: 73 Year
  Sex: Male

DRUGS (3)
  1. VORICONAZOL (2878A) [Suspect]
     Active Substance: VORICONAZOLE
     Indication: BRONCHOPULMONARY ASPERGILLOSIS
     Dosage: UNIT DOSE : 150 MG
     Route: 042
     Dates: start: 20180628, end: 20180702
  2. VORICONAZOL (2878A) [Suspect]
     Active Substance: VORICONAZOLE
     Indication: BRONCHOPULMONARY ASPERGILLOSIS
     Dosage: UNIT DOSE : 100 MG
     Route: 042
     Dates: start: 20180703, end: 201807
  3. VORICONAZOL (2878A) [Suspect]
     Active Substance: VORICONAZOLE
     Indication: BRONCHOPULMONARY ASPERGILLOSIS
     Dosage: UNIT DOSE : 200 MG
     Route: 042
     Dates: start: 20180623, end: 20180627

REACTIONS (1)
  - Hallucination, visual [Recovered/Resolved]

NARRATIVE: CASE EVENT DATE: 201806
